FAERS Safety Report 5261565-3 (Version None)
Quarter: 2007Q1

REPORT INFORMATION
  Report Type: 
  Country: None (occurrence: None)
  Receive Date: 20070307
  Receipt Date: 20070220
  Transmission Date: 20070707
  Serious: Yes (Death)
  Sender: FDA-Public Use
  Company Number: 2007JP000717

PATIENT

DRUGS (2)
  1. FUNGUARD (MICAFUNGIN) INJECTION [Suspect]
     Indication: FUNGAL INFECTION
     Dosage: 150 MG, UNKNOWN/D, IV DRIP
     Route: 041
     Dates: start: 20070130, end: 20070212
  2. PRODIF (FOSFLUCONAZOLE) INJECTION [Suspect]
     Dosage: 400 MG, UNKNOWN/D, IV NOS
     Route: 042
     Dates: start: 20070213, end: 20070215

REACTIONS (2)
  - HEPATIC FUNCTION ABNORMAL [None]
  - JAUNDICE [None]
